FAERS Safety Report 6390442 (Version 9)
Quarter: 2013Q3

REPORT INFORMATION
  Report Type: Spontaneous
  Country: US (occurrence: US)
  Receive Date: 20070824
  Receipt Date: 20130903
  Transmission Date: 20140515
  Serious: Yes (Hospitalization, Other)
  Sender: FDA-Public Use
  Company Number: PHEH2007US11369

PATIENT
  Sex: Female

DRUGS (1)
  1. ZOMETA [Suspect]
     Dates: start: 20021105, end: 20041209

REACTIONS (74)
  - Sepsis [Unknown]
  - Osteonecrosis of jaw [Unknown]
  - Injury [Unknown]
  - Pain [Unknown]
  - Anxiety [Unknown]
  - Decreased interest [Unknown]
  - Disability [Unknown]
  - Hypermetabolism [Unknown]
  - Metastases to bone [Unknown]
  - Spinal compression fracture [Unknown]
  - Body height decreased [Unknown]
  - Spinal column stenosis [Unknown]
  - Macrocytosis [Unknown]
  - Bone lesion [Unknown]
  - Hydronephrosis [Unknown]
  - Nephrolithiasis [Unknown]
  - Bone marrow oedema [Unknown]
  - Spinal osteoarthritis [Unknown]
  - Bacteraemia [Unknown]
  - Renal failure [Unknown]
  - Pyrexia [Unknown]
  - Chills [Unknown]
  - Hypotension [Unknown]
  - Urinary tract infection enterococcal [Unknown]
  - Blood creatine increased [Unknown]
  - Respiratory failure [Unknown]
  - Ecchymosis [Unknown]
  - Oedema peripheral [Unknown]
  - Localised oedema [Unknown]
  - Hypoacusis [Unknown]
  - Atelectasis [Unknown]
  - Device malfunction [Unknown]
  - Single functional kidney [Unknown]
  - Septic shock [Unknown]
  - Multi-organ failure [Unknown]
  - Renal failure acute [Not Recovered/Not Resolved]
  - Onychomycosis [Unknown]
  - Osteoporosis [Unknown]
  - Actinic keratosis [Unknown]
  - Aortic valve incompetence [Unknown]
  - Ejection fraction decreased [Unknown]
  - Cardiomyopathy [Unknown]
  - Dilatation ventricular [Unknown]
  - Left ventricular dysfunction [Unknown]
  - Mitral valve incompetence [Unknown]
  - Failure to thrive [Unknown]
  - Dysphagia [Unknown]
  - Hypertension [Unknown]
  - Blepharitis [Unknown]
  - Renal failure chronic [Unknown]
  - Urosepsis [Unknown]
  - Malnutrition [Unknown]
  - Alopecia [Unknown]
  - Diverticulum [Unknown]
  - Pleural effusion [Unknown]
  - Dyspnoea [Unknown]
  - Cardiomegaly [Unknown]
  - Lung infiltration [Unknown]
  - Breast cancer metastatic [Unknown]
  - Aortic calcification [Unknown]
  - Osteopenia [Unknown]
  - Abdominal pain [Unknown]
  - Abdominal distension [Unknown]
  - Chest pain [Unknown]
  - Emphysema [Unknown]
  - Oesophageal dilatation [Unknown]
  - Bronchitis [Unknown]
  - Rheumatoid arthritis [Unknown]
  - Atrial fibrillation [Unknown]
  - Diarrhoea [Unknown]
  - Pyelocaliectasis [Unknown]
  - Tongue ulceration [Unknown]
  - Osteomyelitis [Unknown]
  - Hepatic cancer [Unknown]
